FAERS Safety Report 8884232 (Version 1)
Quarter: 2012Q4

REPORT INFORMATION
  Report Type: 
  Country: US (occurrence: US)
  Receive Date: 20121102
  Receipt Date: 20121102
  Transmission Date: 20130627
  Serious: No
  Sender: FDA-Public Use
  Company Number: US-ASTRAZENECA-2012SE11916

PATIENT
  Age: 70 Year
  Sex: Female

DRUGS (2)
  1. CRESTOR [Suspect]
     Route: 048
  2. RESTASIS [Suspect]

REACTIONS (5)
  - Cardiac disorder [Unknown]
  - Hypertension [Unknown]
  - Eye haemorrhage [Unknown]
  - Stress [Unknown]
  - Drug dose omission [Unknown]
